FAERS Safety Report 10791889 (Version 1)
Quarter: 2015Q1

REPORT INFORMATION
  Report Type: Spontaneous
  Country: US (occurrence: US)
  Receive Date: 20150213
  Receipt Date: 20150213
  Transmission Date: 20150721
  Serious: Yes (Hospitalization)
  Sender: FDA-Public Use
  Company Number: US-TARO PHARMACEUTICALS U.S.A., INC-2015SUN00394

PATIENT
  Age: 50 Year
  Sex: Female

DRUGS (1)
  1. WARFARIN [Suspect]
     Active Substance: WARFARIN
     Indication: PULMONARY EMBOLISM
     Dosage: UNK
     Route: 065

REACTIONS (4)
  - International normalised ratio increased [Recovered/Resolved]
  - Oral mucosa haematoma [Recovering/Resolving]
  - Dysphagia [Recovering/Resolving]
  - Speech disorder [Recovering/Resolving]
